FAERS Safety Report 7783382-2 (Version None)
Quarter: 2011Q3

REPORT INFORMATION
  Report Type: 
  Country: None (occurrence: None)
  Receive Date: 20110927
  Receipt Date: 20110927
  Transmission Date: 20111222
  Serious: No
  Sender: FDA-Public Use
  Company Number: None

PATIENT
  Age: 62 Year
  Sex: Male
  Weight: 54.1 kg

DRUGS (1)
  1. PHENAZOPYRIDINE HCL TAB [Suspect]
     Dosage: 100 MG TID PO
     Route: 048
     Dates: start: 20110708, end: 20110711

REACTIONS (1)
  - RENAL FAILURE ACUTE [None]
